FAERS Safety Report 5224238-9 (Version None)
Quarter: 2007Q1

REPORT INFORMATION
  Report Type: 
  Country: None (occurrence: None)
  Receive Date: 20070130
  Receipt Date: 20070124
  Transmission Date: 20070707
  Serious: Yes (Death, Other)
  Sender: FDA-Public Use
  Company Number: US-SHR-US-2006-020743

PATIENT

DRUGS (5)
  1. CAMPATH [Suspect]
     Indication: RENAL TRANSPLANT
  2. HEPARIN [Concomitant]
  3. CORTICOSTEROIDS [Concomitant]
     Indication: PREMEDICATION
  4. TYLENOL [Concomitant]
     Indication: PREMEDICATION
  5. BENADRYL ^ACHE^ [Concomitant]
     Indication: PREMEDICATION

REACTIONS (6)
  - BRAIN DEATH [None]
  - CARDIAC DISORDER [None]
  - DEATH [None]
  - HEPATIC FAILURE [None]
  - THROMBOSIS [None]
  - TRANSPLANT FAILURE [None]
